FAERS Safety Report 9790701 (Version 2)
Quarter: 2014Q1

REPORT INFORMATION
  Report Type: Spontaneous
  Country: JP (occurrence: JP)
  Receive Date: 20131231
  Receipt Date: 20140121
  Transmission Date: 20141002
  Serious: Yes (Other)
  Sender: FDA-Public Use
  Company Number: JP-GLAXOSMITHKLINE-B0956145A

PATIENT
  Age: 2 Decade
  Sex: Male

DRUGS (2)
  1. LAMICTAL [Suspect]
     Indication: EPILEPSY
     Dosage: 200MG PER DAY
     Route: 048
  2. TEGRETOL [Concomitant]
     Route: 048

REACTIONS (4)
  - Epilepsy [Recovered/Resolved]
  - Myoclonic epilepsy [Unknown]
  - Fatigue [Unknown]
  - Somnolence [Unknown]
